FAERS Safety Report 23200782 (Version 2)
Quarter: 2023Q4

REPORT INFORMATION
  Report Type: Other
  Country: US (occurrence: US)
  Receive Date: 20231118
  Receipt Date: 20231225
  Transmission Date: 20240110
  Serious: Yes (Other)
  Sender: FDA-Public Use
  Company Number: US-TRAVERE-2023TVT00697

PATIENT
  Age: 62 Year
  Sex: Male
  Weight: 97.52 kg

DRUGS (11)
  1. FILSPARI [Suspect]
     Active Substance: SPARSENTAN
     Indication: IgA nephropathy
     Route: 048
     Dates: start: 202304
  2. FILSPARI [Suspect]
     Active Substance: SPARSENTAN
     Route: 048
  3. SKYRIZI [Concomitant]
     Active Substance: RISANKIZUMAB-RZAA
  4. VITAMIN C [Concomitant]
     Active Substance: ASCORBIC ACID
  5. Zinc-15 [Concomitant]
  6. Glucosamine-Chondroitin-D3 [Concomitant]
  7. ASPIRIN [Concomitant]
     Active Substance: ASPIRIN
  8. ATORVASTATIN CALCIUM [Concomitant]
     Active Substance: ATORVASTATIN CALCIUM
  9. JANTOVEN [Concomitant]
     Active Substance: WARFARIN SODIUM
  10. METOPROLOL SUCCINATE [Concomitant]
     Active Substance: METOPROLOL SUCCINATE
  11. PANTOPRAZOLE SODIUM [Concomitant]
     Active Substance: PANTOPRAZOLE SODIUM

REACTIONS (2)
  - Abdominal hernia [Recovered/Resolved]
  - Blood potassium increased [Recovered/Resolved]

NARRATIVE: CASE EVENT DATE: 20230901
